FAERS Safety Report 4378008-4 (Version None)
Quarter: 2004Q2

REPORT INFORMATION
  Report Type: 
  Country: None (occurrence: None)
  Receive Date: 20040608
  Receipt Date: 20040601
  Transmission Date: 20050107
  Serious: Yes (Life-Threatening, Hospitalization)
  Sender: FDA-Public Use
  Company Number: STA-AE-04-MTX-243

PATIENT
  Age: 69 Year
  Sex: Male

DRUGS (1)
  1. METHOTREXATE [Suspect]
     Indication: RHEUMATOID ARTHRITIS
     Dosage: 4 MG 1X PER 1 WK, ORAL
     Route: 048
     Dates: start: 20040101, end: 20040501

REACTIONS (6)
  - C-REACTIVE PROTEIN INCREASED [None]
  - HAEMOGLOBIN DECREASED [None]
  - HEPATITIS FULMINANT [None]
  - LEUCINE AMINOPEPTIDASE INCREASED [None]
  - PLATELET COUNT ABNORMAL [None]
  - PYREXIA [None]
